FAERS Safety Report 17346248 (Version 1)
Quarter: 2020Q1

REPORT INFORMATION
  Report Type: Spontaneous
  Country: US (occurrence: US)
  Receive Date: 20200114
  Receipt Date: 20200114
  Transmission Date: 20200409
  Serious: Yes (Other)
  Sender: FDA-Public Use
  Company Number: None

PATIENT
  Age: 82 Year
  Sex: Female
  Weight: 78.47 kg

DRUGS (1)
  1. LINEZOLID ANTIBIOTIC GENERIC FOR ZYVOX [Suspect]
     Active Substance: LINEZOLID
     Indication: ABSCESS
     Dosage: ?          QUANTITY:1 TABLET;?
     Route: 048
     Dates: start: 20191210, end: 20191217

REACTIONS (4)
  - Oral discomfort [None]
  - Abdominal pain upper [None]
  - Oesophageal spasm [None]
  - Fungal infection [None]

NARRATIVE: CASE EVENT DATE: 20191216
